FAERS Safety Report 13039431 (Version 1)
Quarter: 2016Q4

REPORT INFORMATION
  Report Type: Spontaneous
  Country: US (occurrence: US)
  Receive Date: 20161217
  Receipt Date: 20161217
  Transmission Date: 20170207
  Serious: No
  Sender: FDA-Public Use
  Company Number: None

PATIENT
  Age: 59 Year
  Sex: Female
  Weight: 82.35 kg

DRUGS (9)
  1. BENICAR [Concomitant]
     Active Substance: OLMESARTAN MEDOXOMIL
  2. OLMESARTAN MEDOXOMIL 20MG TABLET [Suspect]
     Active Substance: OLMESARTAN MEDOXOMIL
     Indication: RENAL DISORDER
     Dosage: ?          QUANTITY:0.5 TABLET(S);?
     Route: 048
     Dates: start: 20161129, end: 20161213
  3. CHOLECALCIFEROL [Concomitant]
     Active Substance: CHOLECALCIFEROL
  4. HUMALOG [Concomitant]
     Active Substance: INSULIN LISPRO
  5. CALCITRIOL. [Concomitant]
     Active Substance: CALCITRIOL
  6. OLMESARTAN MEDOXOMIL 20MG TABLET [Suspect]
     Active Substance: OLMESARTAN MEDOXOMIL
     Indication: BLOOD PRESSURE MEASUREMENT
     Dosage: ?          QUANTITY:0.5 TABLET(S);?
     Route: 048
     Dates: start: 20161129, end: 20161213
  7. CALCIUM [Concomitant]
     Active Substance: CALCIUM
  8. OLMESARTAN MEDOXOMIL 20MG TABLET [Suspect]
     Active Substance: OLMESARTAN MEDOXOMIL
     Indication: PROPHYLAXIS
     Dosage: ?          QUANTITY:0.5 TABLET(S);?
     Route: 048
     Dates: start: 20161129, end: 20161213
  9. MAGNESIUM OXIDE. [Concomitant]
     Active Substance: MAGNESIUM OXIDE

REACTIONS (3)
  - Product substitution issue [None]
  - Oral candidiasis [None]
  - Tongue discomfort [None]

NARRATIVE: CASE EVENT DATE: 20161201
